FAERS Safety Report 20469445 (Version 2)
Quarter: 2022Q1

REPORT INFORMATION
  Report Type: Spontaneous
  Country: JP (occurrence: JP)
  Receive Date: 20220214
  Receipt Date: 20220222
  Transmission Date: 20220423
  Serious: Yes (Other)
  Sender: FDA-Public Use
  Company Number: JP-PFIZER INC-202200214821

PATIENT
  Age: 7 Decade
  Sex: Female

DRUGS (1)
  1. MEROPENEM [Suspect]
     Active Substance: MEROPENEM
     Indication: Meningitis
     Dosage: 6 G, 1X/DAY
     Route: 041

REACTIONS (2)
  - Off label use [Unknown]
  - Renal impairment [Unknown]
